FAERS Safety Report 6489959-9 (Version None)
Quarter: 2009Q4

REPORT INFORMATION
  Report Type: 
  Country: None (occurrence: None)
  Receive Date: 20091211
  Receipt Date: 20091202
  Transmission Date: 20100525
  Serious: Yes (Hospitalization, Other)
  Sender: FDA-Public Use
  Company Number: PHHY2009BE53571

PATIENT
  Sex: Female

DRUGS (1)
  1. SANDOSTATIN LAR [Suspect]
     Indication: PANCREATIC NEUROENDOCRINE TUMOUR METASTATIC
     Dosage: ONCE MONTHLY
     Dates: start: 20091001

REACTIONS (7)
  - ASTHENIA [None]
  - ATAXIA [None]
  - CENTRAL NERVOUS SYSTEM LESION [None]
  - CHOREA [None]
  - DYSSTASIA [None]
  - HYPOPHAGIA [None]
  - POLYNEUROPATHY [None]
